FAERS Safety Report 9109297 (Version 1)
Quarter: 2013Q1

REPORT INFORMATION
  Report Type: Spontaneous
  Country: US (occurrence: US)
  Receive Date: 20130222
  Receipt Date: 20130222
  Transmission Date: 20140127
  Serious: Yes (Hospitalization)
  Sender: FDA-Public Use
  Company Number: US-BAYER-2013-021091

PATIENT
  Age: 33 Year
  Sex: Female

DRUGS (3)
  1. YAZ [Suspect]
  2. VALTREX [Concomitant]
  3. DEPO PROVERA [Concomitant]

REACTIONS (1)
  - Pulmonary embolism [None]
